FAERS Safety Report 23251298 (Version 1)
Quarter: 2023Q4

REPORT INFORMATION
  Report Type: Spontaneous
  Country: KR (occurrence: KR)
  Receive Date: 20231201
  Receipt Date: 20231201
  Transmission Date: 20240109
  Serious: Yes (Hospitalization)
  Sender: FDA-Public Use
  Company Number: KR-SA-SAC20231130000557

PATIENT
  Age: 29 Year
  Sex: Male

DRUGS (1)
  1. PLAVIX [Suspect]
     Active Substance: CLOPIDOGREL BISULFATE
     Indication: Cerebral artery occlusion
     Dosage: 75 MG, QD
     Route: 065
     Dates: start: 20220921, end: 20221009

REACTIONS (3)
  - Ocular hyperaemia [Recovered/Resolved]
  - Rash [Recovered/Resolved]
  - Pyrexia [Recovered/Resolved]

NARRATIVE: CASE EVENT DATE: 20221007
